FAERS Safety Report 8658240 (Version 2)
Quarter: 2013Q1

REPORT INFORMATION
  Report Type: Spontaneous
  Country: US (occurrence: US)
  Receive Date: 20120710
  Receipt Date: 20130211
  Transmission Date: 20140127
  Serious: Yes (Hospitalization)
  Sender: FDA-Public Use
  Company Number: US-ASTRAZENECA-2011SE25173

PATIENT
  Age: 21 Year
  Sex: Female
  Weight: 90.7 kg

DRUGS (4)
  1. SEROQUEL [Suspect]
     Indication: BIPOLAR DISORDER
     Route: 048
     Dates: start: 2008
  2. SEROQUEL [Suspect]
     Indication: DEPRESSION
     Route: 048
     Dates: start: 2008
  3. DEPAKOTE [Concomitant]
  4. FLUOXETINE [Concomitant]

REACTIONS (3)
  - Hallucination, auditory [Unknown]
  - Insomnia [Unknown]
  - Drug dose omission [Unknown]
